FAERS Safety Report 14187578 (Version 1)
Quarter: 2017Q4

REPORT INFORMATION
  Report Type: Spontaneous
  Country: US (occurrence: US)
  Receive Date: 20171114
  Receipt Date: 20171114
  Transmission Date: 20180321
  Serious: No
  Sender: FDA-Public Use
  Company Number: US-BAUSCH-BL-2017-021466

PATIENT
  Sex: Female

DRUGS (2)
  1. NU-DERM CLEAR [Suspect]
     Active Substance: HYDROQUINONE
     Indication: SOLAR LENTIGO
     Route: 065
  2. TRETINOIN CREAM 0.1% [Suspect]
     Active Substance: TRETINOIN
     Indication: SOLAR LENTIGO

REACTIONS (5)
  - Skin burning sensation [Unknown]
  - Skin exfoliation [Unknown]
  - Erythema [Unknown]
  - Dry skin [Unknown]
  - Skin wrinkling [Unknown]
